FAERS Safety Report 5602243-8 (Version None)
Quarter: 2008Q1

REPORT INFORMATION
  Report Type: 
  Country: None (occurrence: None)
  Receive Date: 20080125
  Receipt Date: 20080119
  Transmission Date: 20080703
  Serious: Yes (Other)
  Sender: FDA-Public Use
  Company Number: CA-JNJFOC-20080105750

PATIENT
  Sex: Female
  Weight: 63.5 kg

DRUGS (1)
  1. LEVAQUIN [Suspect]
     Indication: PNEUMONIA
     Route: 048

REACTIONS (12)
  - ABNORMAL DREAMS [None]
  - ARTHRALGIA [None]
  - DECREASED APPETITE [None]
  - DISSOCIATION [None]
  - DYSGEUSIA [None]
  - FEELING ABNORMAL [None]
  - HEADACHE [None]
  - HYPOAESTHESIA [None]
  - JOINT STIFFNESS [None]
  - PARAESTHESIA ORAL [None]
  - PERIPHERAL COLDNESS [None]
  - WEIGHT DECREASED [None]
